FAERS Safety Report 10925251 (Version 1)
Quarter: 2015Q1

REPORT INFORMATION
  Report Type: Spontaneous
  Country: US (occurrence: US)
  Receive Date: 20150318
  Receipt Date: 20150318
  Transmission Date: 20150721
  Serious: No
  Sender: FDA-Public Use
  Company Number: US-PFIZER INC-2015087472

PATIENT
  Age: 78 Year
  Sex: Male

DRUGS (10)
  1. VITAMIN D3 [Concomitant]
     Active Substance: CHOLECALCIFEROL
     Dosage: 2000 IU, DAILY
     Route: 048
     Dates: start: 20150223
  2. LIPITOR [Concomitant]
     Active Substance: ATORVASTATIN CALCIUM
     Indication: BLOOD CHOLESTEROL ABNORMAL
     Dosage: 40 MG, DAILY
     Route: 048
     Dates: start: 20130723
  3. LANTUS [Concomitant]
     Active Substance: INSULIN GLARGINE
     Indication: DIABETES MELLITUS
     Dosage: 15 IU, DAILY
     Route: 058
     Dates: start: 20130723
  4. ASPIRIN. [Concomitant]
     Active Substance: ASPIRIN
     Indication: CARDIAC DISORDER
     Dosage: 81 MG, DAILY
     Route: 048
     Dates: start: 20130723
  5. NORVASC [Concomitant]
     Active Substance: AMLODIPINE BESYLATE
     Dosage: 5 MG, DAILY
     Route: 048
     Dates: start: 20131122
  6. SUTENT [Suspect]
     Active Substance: SUNITINIB MALATE
     Indication: METASTATIC RENAL CELL CARCINOMA
     Dosage: UNK
  7. TENEX [Concomitant]
     Active Substance: GUANFACINE HYDROCHLORIDE
     Dosage: 1 MG, DAILY
     Route: 048
     Dates: start: 20131122
  8. HYDROCHLOROTHIAZIDE. [Concomitant]
     Active Substance: HYDROCHLOROTHIAZIDE
     Dosage: 25 MG, DAILY
     Route: 048
     Dates: start: 20130723
  9. PROTONIX [Concomitant]
     Active Substance: PANTOPRAZOLE SODIUM
     Dosage: 40 MG, DAILY
     Route: 048
     Dates: start: 20140130
  10. RAPAFLO [Concomitant]
     Active Substance: SILODOSIN
     Dosage: 8 MG, DAILY
     Route: 048
     Dates: start: 20130723

REACTIONS (2)
  - Disease progression [Unknown]
  - Metastatic renal cell carcinoma [Unknown]
